FAERS Safety Report 6067885-7 (Version None)
Quarter: 2009Q1

REPORT INFORMATION
  Report Type: 
  Country: None (occurrence: None)
  Receive Date: 20090203
  Receipt Date: 20090130
  Transmission Date: 20090719
  Serious: Yes (Hospitalization, Disabling)
  Sender: FDA-Public Use
  Company Number: PPC200900002

PATIENT
  Age: 22 Year
  Sex: Male

DRUGS (8)
  1. VANCOMYCIN HYDROCHLORIDE [Suspect]
     Indication: BACTERIAL INFECTION
     Dosage: 1 GM, 1 IN 8 HR, INTRAVENOUS
     Route: 042
  2. TOBRAMYCIN [Suspect]
     Indication: BACTERIAL INFECTION
     Dosage: 560 MG, 1 I N 1 D, INTRAVENOUS
     Route: 042
  3. PIPERACILLIN AND TAZOBACTAM [Suspect]
     Indication: BACTERIAL INFECTION
     Dosage: 4.5 GM, EVERY 6 HOURS, INTRAVENOUS
     Route: 042
  4. TOBRAMYCIN [Concomitant]
  5. ULTRASE MT20 [Concomitant]
  6. ADEK (ADEK) [Concomitant]
  7. ALBUTEROL [Concomitant]
  8. PULMOZYME [Concomitant]

REACTIONS (7)
  - CYSTIC FIBROSIS LUNG [None]
  - DISEASE RECURRENCE [None]
  - IMPAIRED WORK ABILITY [None]
  - JOINT RANGE OF MOTION DECREASED [None]
  - MUSCULOSKELETAL STIFFNESS [None]
  - NEURALGIC AMYOTROPHY [None]
  - TREATMENT NONCOMPLIANCE [None]
